FAERS Safety Report 23742867 (Version 1)
Quarter: 2024Q2

REPORT INFORMATION
  Report Type: Spontaneous
  Country: PL (occurrence: PL)
  Receive Date: 20240415
  Receipt Date: 20240415
  Transmission Date: 20240715
  Serious: Yes (Hospitalization, Other)
  Sender: FDA-Public Use
  Company Number: PL-NOVPHSZ-PHHY2018PL183323

PATIENT
  Age: 47 Year
  Sex: Male

DRUGS (37)
  1. CYCLOPHOSPHAMIDE [Suspect]
     Active Substance: CYCLOPHOSPHAMIDE
     Indication: Pulmonary alveolar haemorrhage
     Dosage: 1.5 G, Q4W (SIX PULSES)
     Route: 065
     Dates: start: 201407, end: 201502
  2. MYCOPHENOLATE MOFETIL [Suspect]
     Active Substance: MYCOPHENOLATE MOFETIL
     Indication: Bronchial haemorrhage
     Dosage: 1 G, QD
     Route: 065
     Dates: start: 201502
  3. MYCOPHENOLATE MOFETIL [Suspect]
     Active Substance: MYCOPHENOLATE MOFETIL
     Dosage: 2 G, QD
     Route: 065
     Dates: start: 201502
  4. MYCOPHENOLATE MOFETIL [Suspect]
     Active Substance: MYCOPHENOLATE MOFETIL
     Dosage: 2 G, QD
     Route: 065
     Dates: start: 201605
  5. MYCOPHENOLATE MOFETIL [Suspect]
     Active Substance: MYCOPHENOLATE MOFETIL
     Dosage: 3 G, QD
     Route: 065
     Dates: start: 201701
  6. MYCOPHENOLATE MOFETIL [Suspect]
     Active Substance: MYCOPHENOLATE MOFETIL
     Dosage: 3 G, QD (GRADUALLY INCREASED)
     Route: 065
     Dates: start: 201504
  7. MYCOPHENOLATE MOFETIL [Suspect]
     Active Substance: MYCOPHENOLATE MOFETIL
     Dosage: THREE PULSES (750- 1000- 1000 MG)
     Route: 065
  8. METHYLPREDNISOLONE [Suspect]
     Active Substance: METHYLPREDNISOLONE
     Indication: Pulmonary alveolar haemorrhage
     Dosage: 1000 MG, UNK
     Route: 065
     Dates: start: 201701
  9. METHYLPREDNISOLONE [Suspect]
     Active Substance: METHYLPREDNISOLONE
     Indication: Bronchial haemorrhage
     Dosage: 500 MG, QD FOR 3 DAYS
     Route: 065
     Dates: start: 201408
  10. METHYLPREDNISOLONE [Suspect]
     Active Substance: METHYLPREDNISOLONE
     Dosage: 3 PULSES 500 MG EACH DAILY FOR 3 DAYS
     Route: 065
     Dates: start: 201408
  11. METHYLPREDNISOLONE [Suspect]
     Active Substance: METHYLPREDNISOLONE
     Dosage: 750 MG
     Route: 065
  12. PREDNISONE [Suspect]
     Active Substance: PREDNISONE
     Dosage: 100 MG, QD
     Route: 065
     Dates: start: 201502
  13. PREDNISONE [Suspect]
     Active Substance: PREDNISONE
     Dosage: 15 MG, UNK
     Route: 065
     Dates: start: 201504
  14. PREDNISONE [Suspect]
     Active Substance: PREDNISONE
     Indication: Dyspnoea
     Dosage: 20 MG, UNK
     Route: 065
     Dates: start: 201401
  15. PREDNISONE [Suspect]
     Active Substance: PREDNISONE
     Dosage: 20 MG, UNK
     Route: 065
     Dates: start: 201605
  16. PREDNISONE [Suspect]
     Active Substance: PREDNISONE
     Dosage: 20 MG, UNK
     Route: 065
     Dates: start: 201701
  17. PREDNISONE [Suspect]
     Active Substance: PREDNISONE
     Dosage: 25 MG, UNK
     Route: 065
     Dates: start: 201408
  18. PREDNISONE [Suspect]
     Active Substance: PREDNISONE
     Dosage: 40 MG, UNK
     Route: 065
     Dates: start: 201605
  19. PREDNISONE [Suspect]
     Active Substance: PREDNISONE
     Dosage: 50 MG, UNK
     Route: 065
     Dates: end: 201701
  20. PREDNISONE [Suspect]
     Active Substance: PREDNISONE
     Dosage: 55 MG, UNK
     Route: 065
     Dates: end: 201408
  21. PREDNISONE [Suspect]
     Active Substance: PREDNISONE
     Dosage: 60 MG, UNK
     Route: 065
     Dates: start: 201408
  22. PREDNISONE [Suspect]
     Active Substance: PREDNISONE
     Dosage: 65 MG, UNK
     Route: 065
     Dates: end: 201504
  23. PREDNISONE [Suspect]
     Active Substance: PREDNISONE
     Dosage: 75 MG, UNK (HIGH GCS DOSE)
     Route: 065
     Dates: start: 201502
  24. PREDNISONE [Suspect]
     Active Substance: PREDNISONE
     Indication: Bronchial haemorrhage
     Dosage: 80 MG, UNK
     Route: 065
     Dates: start: 201312
  25. PREDNISONE [Suspect]
     Active Substance: PREDNISONE
     Dosage: 80 MG, UNK
     Route: 065
     Dates: start: 201701
  26. PREDNISONE [Suspect]
     Active Substance: PREDNISONE
     Dosage: 90 MG, UNK
     Route: 065
     Dates: end: 201502
  27. AMOXICILLIN [Concomitant]
     Active Substance: AMOXICILLIN
     Indication: Antibiotic therapy
     Route: 065
  28. AMOXICILLIN [Concomitant]
     Active Substance: AMOXICILLIN
     Indication: Pulmonary alveolar haemorrhage
  29. CLARITHROMYCIN [Concomitant]
     Active Substance: CLARITHROMYCIN
     Indication: Antibiotic therapy
     Dosage: UNK
     Route: 065
  30. CLARITHROMYCIN [Concomitant]
     Active Substance: CLARITHROMYCIN
     Indication: Pulmonary alveolar haemorrhage
  31. CLAVULANIC ACID [Concomitant]
     Active Substance: CLAVULANIC ACID
     Indication: Antibiotic therapy
     Dosage: UNK
     Route: 065
  32. CLAVULANIC ACID [Concomitant]
     Active Substance: CLAVULANIC ACID
     Indication: Pulmonary alveolar haemorrhage
  33. FLUCONAZOLE [Concomitant]
     Active Substance: FLUCONAZOLE
     Indication: Antifungal treatment
     Dosage: UNK
     Route: 065
  34. FLUCONAZOLE [Concomitant]
     Active Substance: FLUCONAZOLE
     Indication: Pulmonary alveolar haemorrhage
  35. HUMAN IMMUNOGLOBULIN G [Concomitant]
     Active Substance: HUMAN IMMUNOGLOBULIN G
     Indication: Pulmonary alveolar haemorrhage
     Dosage: 50 G, QD; 50 G, DAILY FOR 5 DAYS
     Route: 042
     Dates: start: 201408
  36. WARFARIN [Concomitant]
     Active Substance: WARFARIN
     Indication: Deep vein thrombosis
     Dosage: UNK
     Route: 065
  37. WARFARIN [Concomitant]
     Active Substance: WARFARIN
     Indication: Pulmonary embolism

REACTIONS (13)
  - Pathological fracture [Unknown]
  - Vitamin D deficiency [Unknown]
  - Product use in unapproved indication [Unknown]
  - Pneumonia [Unknown]
  - Rib fracture [Unknown]
  - Respiratory failure [Unknown]
  - Pulmonary alveolar haemorrhage [Recovering/Resolving]
  - Haemoptysis [Unknown]
  - Disease recurrence [Recovering/Resolving]
  - Therapeutic response decreased [Recovering/Resolving]
  - Off label use [Unknown]
  - Osteoporosis [Unknown]
  - Multiple fractures [Unknown]

NARRATIVE: CASE EVENT DATE: 20150401
